FAERS Safety Report 10456350 (Version 1)
Quarter: 2014Q3

REPORT INFORMATION
  Report Type: Spontaneous
  Country: IT (occurrence: None)
  Receive Date: 20140828
  Receipt Date: 20140828
  Transmission Date: 20150326
  Serious: Yes (Hospitalization)
  Sender: FDA-Public Use
  Company Number: 13IT008030

PATIENT
  Age: 79 Year
  Sex: Female

DRUGS (7)
  1. NORVASC [Concomitant]
     Active Substance: AMLODIPINE BESYLATE
  2. OMEPRAZOLE. [Concomitant]
     Active Substance: OMEPRAZOLE
  3. COUMADIN [Concomitant]
     Active Substance: WARFARIN SODIUM
  4. LANOXIN [Concomitant]
     Active Substance: DIGOXIN
  5. PLAUNAZIDE (HYDROCHLOROTHIAZIDE, OLMESARTAN MEDOXOMIL) [Concomitant]
  6. PAROXETINE (PAROXETINE) UNKNOWN [Suspect]
     Active Substance: PAROXETINE HYDROCHLORIDE
     Indication: PRODUCT USED FOR UNKNOWN INDICATION
     Route: 048
     Dates: start: 20130601, end: 20131011
  7. LOBIVON (NEBIVOLOL HYDROCHLORIDE) [Concomitant]

REACTIONS (4)
  - Hyponatraemia [None]
  - Vertigo [None]
  - Agitation [None]
  - Confusional state [None]

NARRATIVE: CASE EVENT DATE: 20131011
